FAERS Safety Report 15979806 (Version 1)
Quarter: 2019Q1

REPORT INFORMATION
  Report Type: Spontaneous
  Country: US (occurrence: US)
  Receive Date: 20190219
  Receipt Date: 20190219
  Transmission Date: 20190418
  Serious: No
  Sender: FDA-Public Use
  Company Number: US-MYLANLABS-2019M1009377

PATIENT

DRUGS (2)
  1. ACCUTANE [Concomitant]
     Active Substance: ISOTRETINOIN
  2. XULANE [Suspect]
     Active Substance: ETHINYL ESTRADIOL\NORELGESTROMIN
     Indication: PRODUCT USED FOR UNKNOWN INDICATION
     Dosage: UNK
     Route: 062

REACTIONS (3)
  - Urticaria [Recovered/Resolved]
  - Product adhesion issue [Unknown]
  - Application site pruritus [Not Recovered/Not Resolved]
